FAERS Safety Report 23400252 (Version 1)
Quarter: 2024Q1

REPORT INFORMATION
  Report Type: Spontaneous
  Country: BR (occurrence: BR)
  Receive Date: 20240114
  Receipt Date: 20240114
  Transmission Date: 20240410
  Serious: Yes (Other)
  Sender: FDA-Public Use
  Company Number: BR-ABBVIE-5581356

PATIENT
  Sex: Male
  Weight: 70 kg

DRUGS (1)
  1. CARBOXYMETHYLCELLULOSE SODIUM [Suspect]
     Active Substance: CARBOXYMETHYLCELLULOSE SODIUM
     Indication: Eye lubrication therapy
     Dosage: FORM STRENGTH: 15 MILLILITER(S)?START DATE AS MORE OR LESS 20/30 YEARS
     Route: 047

REACTIONS (18)
  - Xerophthalmia [Not Recovered/Not Resolved]
  - Spinal cord injury [Unknown]
  - Fatigue [Unknown]
  - Mobility decreased [Unknown]
  - Nervous system disorder [Unknown]
  - Muscular weakness [Unknown]
  - Nervousness [Unknown]
  - Osteoarthritis [Unknown]
  - Dysstasia [Unknown]
  - Dry eye [Not Recovered/Not Resolved]
  - Human T-cell lymphotropic virus type I infection [Unknown]
  - Polyneuropathy [Unknown]
  - Kyphosis [Unknown]
  - Neurogenic bowel [Unknown]
  - Neuritis [Unknown]
  - Anxiety [Not Recovered/Not Resolved]
  - Paraplegia [Unknown]
  - Drug ineffective [Unknown]

NARRATIVE: CASE EVENT DATE: 20170101
